FAERS Safety Report 9942362 (Version 7)
Quarter: 2014Q2

REPORT INFORMATION
  Report Type: Spontaneous
  Country: US (occurrence: US)
  Receive Date: 20140303
  Receipt Date: 20140523
  Transmission Date: 20141212
  Serious: No
  Sender: FDA-Public Use
  Company Number: US-VERTEX PHARMACEUTICALS INC-2014-001046

PATIENT
  Age: 60 Year
  Sex: Male
  Weight: 109.75 kg

DRUGS (10)
  1. INCIVEK [Suspect]
     Indication: HEPATITIS C
     Dosage: 3 DF, BID
     Route: 048
     Dates: start: 20140221, end: 20140516
  2. RIBAVIRIN [Suspect]
     Indication: HEPATITIS C
     Dosage: 3 DF, BID
     Route: 048
     Dates: start: 20140221
  3. PEGASYS [Suspect]
     Indication: HEPATITIS C
     Dosage: 180 ?G, QW
     Route: 058
     Dates: start: 20140221
  4. ASPIRIN [Concomitant]
     Indication: PRODUCT USED FOR UNKNOWN INDICATION
     Dosage: 81 MG, QOD
     Route: 048
  5. METFORMIN [Concomitant]
     Indication: TYPE 2 DIABETES MELLITUS
     Dosage: 750 MG, BID
     Route: 048
  6. FUROSEMIDE [Concomitant]
     Indication: DIURETIC THERAPY
     Dosage: UNK, QD
     Route: 048
  7. KCL [Concomitant]
     Indication: PRODUCT USED FOR UNKNOWN INDICATION
     Route: 048
  8. VITAMIN D [Concomitant]
     Indication: PRODUCT USED FOR UNKNOWN INDICATION
     Route: 048
  9. CLONAZEPAM [Concomitant]
     Indication: PRODUCT USED FOR UNKNOWN INDICATION
     Route: 048
  10. ZOFRAN [Concomitant]
     Indication: NAUSEA
     Dosage: 4 MG, BID
     Route: 048

REACTIONS (23)
  - Blood glucose increased [Recovered/Resolved]
  - Headache [Recovering/Resolving]
  - Epistaxis [Recovered/Resolved]
  - Abdominal discomfort [Not Recovered/Not Resolved]
  - Aggression [Recovered/Resolved]
  - Decreased appetite [Recovering/Resolving]
  - Feeling hot [Recovered/Resolved]
  - Influenza like illness [Not Recovered/Not Resolved]
  - Irritability [Recovered/Resolved]
  - Arthralgia [Not Recovered/Not Resolved]
  - Gingival inflammation [Not Recovered/Not Resolved]
  - White blood cell count decreased [Not Recovered/Not Resolved]
  - Fatigue [Not Recovered/Not Resolved]
  - Dysgeusia [Not Recovered/Not Resolved]
  - Anal pruritus [Recovering/Resolving]
  - Platelet count decreased [Recovered/Resolved]
  - Rash erythematous [Recovered/Resolved]
  - Nausea [Not Recovered/Not Resolved]
  - Anorectal discomfort [Recovering/Resolving]
  - Erythema [Not Recovered/Not Resolved]
  - Red blood cell count decreased [Not Recovered/Not Resolved]
  - Diarrhoea [Not Recovered/Not Resolved]
  - Vomiting [Not Recovered/Not Resolved]
